FAERS Safety Report 5118406-4 (Version None)
Quarter: 2006Q3

REPORT INFORMATION
  Report Type: 
  Country: None (occurrence: None)
  Receive Date: 20060926
  Receipt Date: 20060920
  Transmission Date: 20061208
  Serious: Yes (Other)
  Sender: FDA-Public Use
  Company Number: 147811USA

PATIENT
  Age: 54 Year
  Sex: Female

DRUGS (1)
  1. METHYLPREDNISOLONE ACETATE 80MG/ML SUSPENSION [Suspect]

REACTIONS (8)
  - ASTHMA [None]
  - B-LYMPHOCYTE COUNT DECREASED [None]
  - BLOOD IMMUNOGLOBULIN G DECREASED [None]
  - CD4 LYMPHOCYTES DECREASED [None]
  - CHRONIC SINUSITIS [None]
  - HUMORAL IMMUNE DEFECT [None]
  - NASAL CONGESTION [None]
  - POLYP [None]
